FAERS Safety Report 11621099 (Version 3)
Quarter: 2016Q1

REPORT INFORMATION
  Report Type: Spontaneous
  Country: FR (occurrence: FR)
  Receive Date: 20151012
  Receipt Date: 20160211
  Transmission Date: 20160525
  Serious: Yes (Death, Hospitalization, Other)
  Sender: FDA-Public Use
  Company Number: FR-GILEAD-2015-0176682

PATIENT
  Age: 71 Year
  Sex: Female

DRUGS (2)
  1. ZYDELIG [Suspect]
     Active Substance: IDELALISIB
     Indication: B-CELL LYMPHOMA
     Dosage: 150 MG, BID
     Route: 065
     Dates: start: 20150327, end: 20150527
  2. KARDEGIC [Concomitant]
     Active Substance: ASPIRIN LYSINE

REACTIONS (10)
  - Blood lactate dehydrogenase increased [Unknown]
  - Interstitial lung disease [Unknown]
  - Bacteraemia [Fatal]
  - Renal impairment [Unknown]
  - Monocytosis [Unknown]
  - Pyrexia [Unknown]
  - Cough [Unknown]
  - Neutropenia [Recovered/Resolved]
  - Neutrophilia [Unknown]
  - Dyspnoea [Unknown]

NARRATIVE: CASE EVENT DATE: 201505
